FAERS Safety Report 8154019-8 (Version None)
Quarter: 2012Q1

REPORT INFORMATION
  Report Type: 
  Country: None (occurrence: None)
  Receive Date: 20120221
  Receipt Date: 20120221
  Transmission Date: 20120608
  Serious: Yes (Other)
  Sender: FDA-Public Use
  Company Number: None

PATIENT
  Age: 78 Year
  Sex: Female
  Weight: 54.431 kg

DRUGS (1)
  1. TRAMADOL HCL [Suspect]
     Indication: FIBROMYALGIA
     Dosage: TWO
     Dates: start: 20111121, end: 20120220

REACTIONS (2)
  - DECREASED APPETITE [None]
  - WEIGHT DECREASED [None]
